FAERS Safety Report 12585892 (Version 2)
Quarter: 2016Q3

REPORT INFORMATION
  Report Type: Spontaneous
  Country: IT (occurrence: IT)
  Receive Date: 20160725
  Receipt Date: 20160725
  Transmission Date: 20161109
  Serious: Yes (Congenital Anomaly, Other)
  Sender: FDA-Public Use
  Company Number: IT-CIPLA LTD.-2016IT09788

PATIENT

DRUGS (5)
  1. FLUOXETINE [Suspect]
     Active Substance: FLUOXETINE HYDROCHLORIDE
     Dosage: UNK
     Route: 064
  2. RAMIPRIL. [Suspect]
     Active Substance: RAMIPRIL
     Dosage: UNK
     Route: 064
  3. ATENOLOL. [Suspect]
     Active Substance: ATENOLOL
     Dosage: UNK
     Route: 064
  4. DELORAZEPAM [Suspect]
     Active Substance: DELORAZEPAM
     Dosage: UNK
     Route: 064
  5. CARBAMAZEPINE. [Suspect]
     Active Substance: CARBAMAZEPINE
     Dosage: 400 MG/DAY
     Route: 064

REACTIONS (2)
  - Congenital inguinal hernia [Unknown]
  - Foetal exposure during pregnancy [Unknown]
